FAERS Safety Report 13943999 (Version 3)
Quarter: 2018Q2

REPORT INFORMATION
  Report Type: Spontaneous
  Country: US (occurrence: US)
  Receive Date: 20170907
  Receipt Date: 20180501
  Transmission Date: 20180711
  Serious: No
  Sender: FDA-Public Use
  Company Number: US-009507513-1708USA012385

PATIENT
  Sex: Female

DRUGS (2)
  1. ZEPATIER [Suspect]
     Active Substance: ELBASVIR\GRAZOPREVIR
     Indication: HEPATITIS C
     Dosage: TOTAL DAILY DOSE: 50-100 MG, 1 TABLET, EVERY DAY
     Route: 048
     Dates: start: 20170813
  2. BENADRYL ALLERGY [Concomitant]
     Active Substance: DIPHENHYDRAMINE HYDROCHLORIDE
     Dosage: UNK

REACTIONS (2)
  - Arthropod bite [Unknown]
  - Pruritus [Unknown]

NARRATIVE: CASE EVENT DATE: 2017
